FAERS Safety Report 26119845 (Version 1)
Quarter: 2025Q4

REPORT INFORMATION
  Report Type: Spontaneous
  Country: US (occurrence: US)
  Receive Date: 20251204
  Receipt Date: 20251204
  Transmission Date: 20260118
  Serious: Yes (Hospitalization, Other)
  Sender: PIRAMAL
  Company Number: US-PCCINC-2025-PPL-000680

PATIENT

DRUGS (3)
  1. MORPHINE SULFATE [Suspect]
     Active Substance: MORPHINE SULFATE
     Indication: Pain
     Dosage: 1MG/ML
     Route: 037
     Dates: start: 202410
  2. MORPHINE SULFATE [Suspect]
     Active Substance: MORPHINE SULFATE
     Dosage: 0.1054 MG/D
     Route: 037
  3. MORPHINE SULFATE [Suspect]
     Active Substance: MORPHINE SULFATE
     Dosage: INCREASED BY 50% FOR BETTER PAIN RELIE
     Route: 037

REACTIONS (3)
  - Rhabdomyolysis [Unknown]
  - Tachycardia [Unknown]
  - Tachypnoea [Unknown]
